FAERS Safety Report 6196132-0 (Version None)
Quarter: 2009Q2

REPORT INFORMATION
  Report Type: 
  Country: None (occurrence: None)
  Receive Date: 20090520
  Receipt Date: 20090428
  Transmission Date: 20091009
  Serious: Yes (Other)
  Sender: FDA-Public Use
  Company Number: US-PFIZER INC-2007070598

PATIENT
  Sex: Female
  Weight: 63.181 kg

DRUGS (2)
  1. CHANTIX [Suspect]
     Indication: SMOKING CESSATION THERAPY
     Dates: start: 20061001
  2. ALL OTHER THERAPEUTIC PRODUCTS [Interacting]

REACTIONS (5)
  - BRONCHITIS [None]
  - DRUG INTERACTION [None]
  - HYPERSENSITIVITY [None]
  - MACULAR DEGENERATION [None]
  - VISUAL IMPAIRMENT [None]
